FAERS Safety Report 7983663 (Version 3)
Quarter: 2012Q4

REPORT INFORMATION
  Report Type: 
  Country: US (occurrence: US)
  Receive Date: 20110609
  Receipt Date: 20120904
  Transmission Date: 20130627
  Serious: Yes (Life-Threatening, Hospitalization, Other)
  Sender: FDA-Public Use
  Company Number: US-US-EMD SERONO, INC.-7063076

PATIENT
  Age: 45 None
  Sex: Female
  Weight: 78 kg

DRUGS (4)
  1. REBIF [Suspect]
     Indication: MULTIPLE SCLEROSIS
     Dates: start: 2002, end: 2006
  2. REBIF [Suspect]
     Route: 058
     Dates: start: 20081201
  3. A LOT OF UNSPECIFIED MEDICATIONS [Concomitant]
  4. A PILL FOR HER SODIUM [Concomitant]
     Indication: BLOOD SODIUM DECREASED

REACTIONS (6)
  - Pneumonia aspiration [Recovered/Resolved]
  - Blood sodium decreased [Unknown]
  - Oxygen saturation decreased [Unknown]
  - Device malfunction [Recovered/Resolved]
  - Muscular weakness [Unknown]
  - Injection site bruising [Unknown]
